FAERS Safety Report 9565915 (Version 4)
Quarter: 2014Q2

REPORT INFORMATION
  Report Type: Report from Study
  Country: UM (occurrence: US)
  Receive Date: 20130930
  Receipt Date: 20140414
  Transmission Date: 20141212
  Serious: Yes (Life-Threatening, Hospitalization, Other)
  Sender: FDA-Public Use
  Company Number: US-PURDUE-USA-2013-0106798

PATIENT
  Age: 60 Year
  Sex: Female
  Weight: 58.5 kg

DRUGS (5)
  1. OXYCONTIN (NDA 22-272) [Suspect]
     Indication: PAIN
     Dosage: 40 MG, TID
     Route: 048
  2. OXYCONTIN (NDA 22-272) [Suspect]
     Dosage: 20 MG, TID
     Route: 048
  3. OXYCONTIN (NDA 22-272) [Suspect]
     Dosage: 40 MG, Q8H
     Dates: start: 201102
  4. OXYCONTIN (NDA 22-272) [Suspect]
     Dosage: UNK
     Dates: start: 200707
  5. LITHIUM [Concomitant]
     Indication: ATTENTION DEFICIT/HYPERACTIVITY DISORDER
     Dosage: UNK MG, UNK

REACTIONS (4)
  - Throat cancer [Not Recovered/Not Resolved]
  - Tongue cancer metastatic [Not Recovered/Not Resolved]
  - Pain [Unknown]
  - Soft tissue necrosis [Unknown]
